FAERS Safety Report 5002604-4 (Version None)
Quarter: 2006Q2

REPORT INFORMATION
  Report Type: 
  Country: None (occurrence: None)
  Receive Date: 20060515
  Receipt Date: 20051123
  Transmission Date: 20061013
  Serious: Yes (Death, Hospitalization)
  Sender: FDA-Public Use
  Company Number: US-MERCK-0511USA04000

PATIENT
  Age: 51 Year
  Sex: Female
  Weight: 91 kg

DRUGS (9)
  1. LEVAQUIN [Concomitant]
     Route: 065
  2. UNASYN (AMPICILLIN SODIUM (+) SULBACTAM SODIUM) [Concomitant]
     Route: 065
  3. ESTRADIOL [Concomitant]
     Indication: ARTIFICIAL MENOPAUSE
     Route: 065
     Dates: start: 20031014, end: 20040610
  4. PRILOSEC [Concomitant]
     Route: 065
  5. CLARITIN [Concomitant]
     Route: 065
  6. SEROQUEL [Concomitant]
     Route: 065
  7. VICODIN [Concomitant]
     Route: 065
     Dates: start: 20000101, end: 20040601
  8. ALLOPURINOL [Concomitant]
     Route: 065
  9. VIOXX [Suspect]
     Indication: PAIN IN EXTREMITY
     Route: 048
     Dates: start: 20040522, end: 20040601

REACTIONS (9)
  - ABDOMINAL PAIN [None]
  - BLOOD PRESSURE INADEQUATELY CONTROLLED [None]
  - CEREBROVASCULAR ACCIDENT [None]
  - CHRONIC OBSTRUCTIVE PULMONARY DISEASE [None]
  - DYSPEPSIA [None]
  - HYPERSENSITIVITY [None]
  - PANCREATIC CARCINOMA [None]
  - PANIC DISORDER [None]
  - THROMBOSIS [None]
